FAERS Safety Report 7571595-4 (Version None)
Quarter: 2011Q2

REPORT INFORMATION
  Report Type: 
  Country: None (occurrence: None)
  Receive Date: 20110624
  Receipt Date: 20110614
  Transmission Date: 20111010
  Serious: Yes (Hospitalization)
  Sender: FDA-Public Use
  Company Number: US-JNJFOC-20110607354

PATIENT
  Sex: Male
  Weight: 82.5 kg

DRUGS (4)
  1. ABIRATERONE ACETATE [Suspect]
     Indication: PROSTATE CANCER METASTATIC
     Route: 048
     Dates: start: 20110311
  2. PREDNISONE [Suspect]
     Route: 065
     Dates: start: 20110502
  3. ABIRATERONE ACETATE [Suspect]
     Route: 048
     Dates: start: 20110506
  4. PREDNISONE [Suspect]
     Indication: PROSTATE CANCER METASTATIC
     Route: 065
     Dates: start: 20110311

REACTIONS (1)
  - NAUSEA [None]
